FAERS Safety Report 20893329 (Version 1)
Quarter: 2022Q2

REPORT INFORMATION
  Report Type: Spontaneous
  Country: IN (occurrence: IN)
  Receive Date: 20220531
  Receipt Date: 20220531
  Transmission Date: 20220721
  Serious: Yes (Death, Other)
  Sender: FDA-Public Use
  Company Number: IN-SUN PHARMACEUTICAL INDUSTRIES LTD-2022R1-338508

PATIENT

DRUGS (6)
  1. LEVETIRACETAM [Suspect]
     Active Substance: LEVETIRACETAM
     Indication: Eclampsia
     Dosage: 3 GRAM, DAILY
     Route: 064
  2. MAGNESIUM SULFATE [Suspect]
     Active Substance: MAGNESIUM SULFATE
     Indication: Eclampsia
     Dosage: UNK
     Route: 064
  3. PHENYTOIN [Suspect]
     Active Substance: PHENYTOIN
     Indication: Eclampsia
     Dosage: 800 MILLIGRAM
     Route: 064
  4. PHENYTOIN [Suspect]
     Active Substance: PHENYTOIN
     Dosage: 100 MILLIGRAM 8TH HOURLY
     Route: 064
  5. VALPROATE [Suspect]
     Active Substance: VALPROIC ACID
     Indication: Eclampsia
     Dosage: 500 MILLIGRAM 8TH HOURLY
     Route: 064
  6. VALPROATE [Suspect]
     Active Substance: VALPROIC ACID
     Dosage: 200 MILLIGRAM, TID
     Route: 064

REACTIONS (3)
  - Premature baby [Fatal]
  - Foetal exposure during pregnancy [Unknown]
  - Low birth weight baby [Unknown]
